FAERS Safety Report 23799698 (Version 1)
Quarter: 2024Q2

REPORT INFORMATION
  Report Type: Spontaneous
  Country: US (occurrence: US)
  Receive Date: 20240430
  Receipt Date: 20240430
  Transmission Date: 20240715
  Serious: Yes (Other)
  Sender: FDA-Public Use
  Company Number: US-009507513-2404USA012373

PATIENT
  Sex: Female

DRUGS (1)
  1. BRIDION [Suspect]
     Active Substance: SUGAMMADEX
     Dosage: 1 DOSAGE FORM, ONCE
     Dates: start: 20240426, end: 20240426

REACTIONS (1)
  - Bradycardia [Recovered/Resolved]

NARRATIVE: CASE EVENT DATE: 20240426
